FAERS Safety Report 11141905 (Version 1)
Quarter: 2015Q2

REPORT INFORMATION
  Report Type: Spontaneous
  Country: US (occurrence: US)
  Receive Date: 20150527
  Receipt Date: 20150527
  Transmission Date: 20150821
  Serious: Yes (Other)
  Sender: FDA-Public Use
  Company Number: 2015SP001724

PATIENT

DRUGS (3)
  1. LATUDA [Suspect]
     Active Substance: LURASIDONE HYDROCHLORIDE
     Route: 048
  2. DEPAKOTE [Concomitant]
     Active Substance: DIVALPROEX SODIUM
  3. OLANZAPINE. [Suspect]
     Active Substance: OLANZAPINE

REACTIONS (1)
  - White blood cell count decreased [Unknown]
